FAERS Safety Report 23405447 (Version 1)
Quarter: 2024Q1

REPORT INFORMATION
  Report Type: Spontaneous
  Country: IN (occurrence: IN)
  Receive Date: 20240116
  Receipt Date: 20240116
  Transmission Date: 20240409
  Serious: Yes (Other)
  Sender: FDA-Public Use
  Company Number: IN-002147023-NVSC2024IN007633

PATIENT
  Age: 36 Year
  Sex: Female

DRUGS (2)
  1. RIBOCICLIB [Suspect]
     Active Substance: RIBOCICLIB
     Indication: Breast cancer metastatic
     Dosage: 600 MG, QD
     Route: 048
     Dates: start: 20220311
  2. RIBOCICLIB [Suspect]
     Active Substance: RIBOCICLIB
     Indication: Human epidermal growth factor receptor negative

REACTIONS (5)
  - Neoplasm malignant [Unknown]
  - Carbohydrate antigen 15-3 [Unknown]
  - Hepatic steatosis [Unknown]
  - Positron emission tomogram abnormal [Unknown]
  - Therapy partial responder [Unknown]

NARRATIVE: CASE EVENT DATE: 20220311
